FAERS Safety Report 7334420-2 (Version None)
Quarter: 2011Q1

REPORT INFORMATION
  Report Type: 
  Country: None (occurrence: None)
  Receive Date: 20110307
  Receipt Date: 20110224
  Transmission Date: 20110831
  Serious: Yes (Disabling)
  Sender: FDA-Public Use
  Company Number: PHHY2010BR50177

PATIENT
  Sex: Female

DRUGS (1)
  1. DIOVAN AMLO FIX [Suspect]
     Dosage: 320 MG VALS AND 5 MG AMLO

REACTIONS (2)
  - CAST APPLICATION [None]
  - LIMB DISCOMFORT [None]
